FAERS Safety Report 15046017 (Version 3)
Quarter: 2018Q3

REPORT INFORMATION
  Report Type: Spontaneous
  Country: FR (occurrence: FR)
  Receive Date: 20180621
  Receipt Date: 20180716
  Transmission Date: 20181010
  Serious: Yes (Hospitalization)
  Sender: FDA-Public Use
  Company Number: FR-009507513-1806FRA006837

PATIENT
  Age: 83 Year
  Sex: Female

DRUGS (5)
  1. POLERY ADULTES [Suspect]
     Active Substance: CODEINE\SISYMBRIUM OFFICINALE WHOLE
     Indication: COUGH
     Dosage: NOT STATED
     Route: 048
     Dates: start: 20180407, end: 20180411
  2. AERIUS [Suspect]
     Active Substance: DESLORATADINE
     Indication: COUGH
     Dosage: NOT STATED
     Route: 048
     Dates: start: 20180407, end: 20180411
  3. PIVALONE (TIXOCORTOL PIVALATE) [Suspect]
     Active Substance: TIXOCORTOL PIVALATE
     Indication: COUGH
     Dosage: NOT STATED
     Route: 045
     Dates: start: 20180407, end: 20180411
  4. HELICIDINE [Suspect]
     Active Substance: ESCARGOT
     Indication: COUGH
     Dosage: NOT STATED
     Route: 048
     Dates: start: 20180407, end: 20180411
  5. KESTIN [Suspect]
     Active Substance: EBASTINE
     Indication: COUGH
     Dosage: NOT STATED
     Route: 048
     Dates: start: 20180407, end: 20180411

REACTIONS (3)
  - Eosinophilia [Recovered/Resolved]
  - Rash maculo-papular [Recovered/Resolved]
  - Thrombocytopenia [Recovered/Resolved]

NARRATIVE: CASE EVENT DATE: 20180410
